FAERS Safety Report 13701684 (Version 1)
Quarter: 2017Q2

REPORT INFORMATION
  Report Type: Spontaneous
  Country: US (occurrence: US)
  Receive Date: 20170628
  Receipt Date: 20170628
  Transmission Date: 20170830
  Serious: Yes (Hospitalization)
  Sender: FDA-Public Use
  Company Number: None

PATIENT
  Age: 28 Year
  Sex: Female

DRUGS (1)
  1. SODIUM BICARBONATE. [Suspect]
     Active Substance: SODIUM BICARBONATE
     Route: 051

REACTIONS (8)
  - Headache [None]
  - Abdominal pain [None]
  - Product contamination microbial [None]
  - Product quality issue [None]
  - Muscle spasms [None]
  - Product use issue [None]
  - Malaise [None]
  - Body temperature increased [None]

NARRATIVE: CASE EVENT DATE: 20170623
